FAERS Safety Report 24729326 (Version 1)
Quarter: 2024Q4

REPORT INFORMATION
  Report Type: Spontaneous
  Country: IT (occurrence: IT)
  Receive Date: 20241213
  Receipt Date: 20241213
  Transmission Date: 20250114
  Serious: Yes (Hospitalization, Other)
  Sender: ALEXION PHARMACEUTICALS
  Company Number: IT-ASTRAZENECA-202412GLO008077IT

PATIENT
  Age: 50 Year

DRUGS (9)
  1. QUETIAPINE FUMARATE [Suspect]
     Active Substance: QUETIAPINE FUMARATE
     Dosage: 300 MILLIGRAM, QD
  2. FLUNITRAZEPAM [Suspect]
     Active Substance: FLUNITRAZEPAM
     Dosage: 1 MILLIGRAM, QD
     Route: 065
  3. ZUCLOPENTHIXOL [Suspect]
     Active Substance: ZUCLOPENTHIXOL
     Dosage: 300MG RP EVERY 12 DAYS
  4. CLOTHIAPINE [Suspect]
     Active Substance: CLOTHIAPINE
     Dosage: 30 GTT 22 HRS
  5. CHLORPROMAZINE [Suspect]
     Active Substance: CHLORPROMAZINE
     Dosage: 100 MILLIGRAM, BID
  6. BIPERIDEN [Suspect]
     Active Substance: BIPERIDEN
     Dosage: 6 MILLIGRAM, QD
  7. DIAZEPAM [Suspect]
     Active Substance: DIAZEPAM
     Dosage: 10 DROP, BID
  8. FLURAZEPAM [Suspect]
     Active Substance: FLURAZEPAM HYDROCHLORIDE
     Dosage: 30 MILLIGRAM, QD
  9. VALPROIC ACID [Suspect]
     Active Substance: VALPROIC ACID
     Dosage: 1000 MILLIGRAM, BID

REACTIONS (5)
  - Torticollis [Recovering/Resolving]
  - Oromandibular dystonia [Recovering/Resolving]
  - Facial spasm [Recovering/Resolving]
  - Sepsis [Unknown]
  - Dysphagia [Unknown]
